FAERS Safety Report 10657447 (Version 1)
Quarter: 2014Q4

REPORT INFORMATION
  Report Type: Spontaneous
  Country: CN (occurrence: None)
  Receive Date: 20141215
  Receipt Date: 20141215
  Transmission Date: 20150529
  Serious: Yes (Hospitalization, Other)
  Sender: FDA-Public Use
  Company Number: CN2014GSK034383

PATIENT
  Age: 47 Year
  Sex: Female

DRUGS (2)
  1. HEPTODIN [Suspect]
     Active Substance: LAMIVUDINE
     Indication: CHRONIC HEPATITIS B
     Route: 048
     Dates: start: 2008, end: 201409
  2. BARACLUDE (ENTECAVIR) [Suspect]
     Active Substance: ENTECAVIR
     Indication: CHRONIC HEPATITIS B
     Route: 048
     Dates: start: 201409, end: 201412

REACTIONS (5)
  - Condition aggravated [None]
  - Hepatic cirrhosis [None]
  - Blood creatine phosphokinase increased [None]
  - Rhabdomyolysis [None]
  - Abasia [None]
